FAERS Safety Report 4434393-6 (Version None)
Quarter: 2004Q3

REPORT INFORMATION
  Report Type: 
  Country: None (occurrence: None)
  Receive Date: 20040825
  Receipt Date: 20040806
  Transmission Date: 20050211
  Serious: Yes (Other)
  Sender: FDA-Public Use
  Company Number: USA040874822

PATIENT
  Age: 62 Year
  Sex: Female
  Weight: 99 kg

DRUGS (10)
  1. FORTEO [Suspect]
     Indication: OSTEOPOROSIS
     Dosage: 20 UG/1 DAY
     Dates: start: 20040407
  2. HYZAAR [Concomitant]
  3. CLONIDINE HCL [Concomitant]
  4. TAMOXIFEN CITRATE [Concomitant]
  5. EFFEXOR XR [Concomitant]
  6. FOSAMAX [Concomitant]
  7. MULTIVITAMIN [Concomitant]
  8. VITAMIN E [Concomitant]
  9. NORVASC [Concomitant]
  10. ZOCOR [Concomitant]

REACTIONS (4)
  - BLOOD PRESSURE INCREASED [None]
  - PAIN EXACERBATED [None]
  - PELVIC FRACTURE [None]
  - PHARMACEUTICAL PRODUCT COMPLAINT [None]
